FAERS Safety Report 6766460-6 (Version None)
Quarter: 2010Q2

REPORT INFORMATION
  Report Type: 
  Country: None (occurrence: None)
  Receive Date: 20100611
  Receipt Date: 20100601
  Transmission Date: 20101027
  Serious: Yes (Other)
  Sender: FDA-Public Use
  Company Number: US-PFIZER INC-2010056902

PATIENT
  Age: 64 Year
  Sex: Male
  Weight: 88.435 kg

DRUGS (3)
  1. LYRICA [Suspect]
     Indication: PAIN
     Dosage: 75 MG, 2X/DAY
     Route: 048
     Dates: start: 20100101, end: 20100201
  2. LYRICA [Suspect]
     Indication: CENTRAL PAIN SYNDROME
     Dosage: 75 MG, 3X/DAY
     Route: 048
     Dates: start: 20100201, end: 20100301
  3. LYRICA [Suspect]
     Dosage: 100 MG, 3X/DAY
     Route: 048
     Dates: start: 20100301

REACTIONS (3)
  - CYSTOSTOMY [None]
  - ERYTHEMA [None]
  - RASH ERYTHEMATOUS [None]
